FAERS Safety Report 8397763 (Version 5)
Quarter: 2012Q4

REPORT INFORMATION
  Report Type: 
  Country: US (occurrence: US)
  Receive Date: 20120209
  Receipt Date: 20121026
  Transmission Date: 20130627
  Serious: Yes (Hospitalization)
  Sender: FDA-Public Use
  Company Number: US-ACTELION-A-NJ2012-60497

PATIENT
  Age: 44 Year
  Sex: Female
  Weight: 47.62 kg

DRUGS (8)
  1. TRACLEER [Suspect]
     Indication: PULMONARY ARTERIAL HYPERTENSION
     Dosage: 125 mg, bid
     Route: 048
     Dates: start: 200809
  2. VELETRI [Suspect]
     Indication: PULMONARY ARTERIAL HYPERTENSION
     Dosage: 89 ng/kg, per min
     Route: 041
     Dates: start: 20110110
  3. REVATIO [Concomitant]
  4. COUMADIN [Concomitant]
  5. LANOXIN [Concomitant]
  6. LASIX [Concomitant]
  7. ALDACTONE [Concomitant]
  8. PLAQUENIL [Concomitant]

REACTIONS (9)
  - Renal failure acute [Recovered/Resolved]
  - Dehydration [Recovered/Resolved]
  - Pain in jaw [Recovering/Resolving]
  - Rash [Recovering/Resolving]
  - Diarrhoea [Recovering/Resolving]
  - Nausea [Recovering/Resolving]
  - Vomiting [Recovered/Resolved]
  - Weight decreased [Recovering/Resolving]
  - Goitre [Recovering/Resolving]
